FAERS Safety Report 7910037 (Version 14)
Quarter: 2016Q3

REPORT INFORMATION
  Report Type: Spontaneous
  Country: US (occurrence: US)
  Receive Date: 20110421
  Receipt Date: 20160721
  Transmission Date: 20161109
  Serious: Yes (Hospitalization, Other)
  Sender: FDA-Public Use
  Company Number: US-009507513-1104USA02222

PATIENT
  Sex: Female
  Weight: 53.97 kg

DRUGS (4)
  1. FOSAMAX [Suspect]
     Active Substance: ALENDRONATE SODIUM
     Indication: OSTEOPOROSIS
     Dosage: 10 MG, QD
     Route: 048
     Dates: start: 1995, end: 200802
  2. ALENDRONATE SODIUM. [Suspect]
     Active Substance: ALENDRONATE SODIUM
     Indication: OSTEOPOROSIS
     Dosage: 10 MG, QD
     Route: 048
  3. FOSAMAX [Suspect]
     Active Substance: ALENDRONATE SODIUM
     Indication: OSTEOPOROSIS
     Dosage: 10 MG, QD
     Route: 048
     Dates: start: 200802, end: 201104
  4. ALENDRONATE SODIUM. [Suspect]
     Active Substance: ALENDRONATE SODIUM
     Indication: OSTEOPOROSIS
     Dosage: 70 MG, QW
     Route: 048
     Dates: start: 20100131

REACTIONS (30)
  - Suicide attempt [Unknown]
  - Intentional overdose [Unknown]
  - Hypertension [Not Recovered/Not Resolved]
  - Adverse event [Unknown]
  - Urinary tract infection [Not Recovered/Not Resolved]
  - Open reduction of fracture [Unknown]
  - Anxiety [Not Recovered/Not Resolved]
  - Cataract [Unknown]
  - Fatigue [Not Recovered/Not Resolved]
  - Arteriosclerosis [Unknown]
  - Osteopenia [Unknown]
  - Spinal compression fracture [Unknown]
  - Urinary retention [Unknown]
  - Anaemia [Unknown]
  - Foot deformity [Unknown]
  - Eye disorder [Unknown]
  - Vulval haematoma [Unknown]
  - Arthralgia [Not Recovered/Not Resolved]
  - Femur fracture [Unknown]
  - Fall [Unknown]
  - Syncope [Unknown]
  - Hyperlipidaemia [Unknown]
  - Cystitis [Unknown]
  - Scoliosis [Unknown]
  - Blindness [Unknown]
  - Constipation [Unknown]
  - Major depression [Not Recovered/Not Resolved]
  - Insomnia [Not Recovered/Not Resolved]
  - Joint stiffness [Not Recovered/Not Resolved]
  - Hypokalaemia [Unknown]

NARRATIVE: CASE EVENT DATE: 20000621
